FAERS Safety Report 16652529 (Version 1)
Quarter: 2019Q3

REPORT INFORMATION
  Report Type: Spontaneous
  Country: US (occurrence: US)
  Receive Date: 20190731
  Receipt Date: 20190731
  Transmission Date: 20191004
  Serious: Yes (Other)
  Sender: FDA-Public Use
  Company Number: US-TEVA-2019-US-1084366

PATIENT
  Sex: Male

DRUGS (2)
  1. ATOMOXETINE TEVA [Suspect]
     Active Substance: ATOMOXETINE
     Indication: ANXIETY
     Route: 065
     Dates: start: 201903
  2. ATOMOXETINE TEVA [Suspect]
     Active Substance: ATOMOXETINE
     Indication: DISTURBANCE IN ATTENTION

REACTIONS (5)
  - Affective disorder [Recovered/Resolved]
  - Anxiety [Unknown]
  - Product substitution issue [Unknown]
  - Irritability [Unknown]
  - Depressed mood [Recovered/Resolved]
